FAERS Safety Report 11065619 (Version 2)
Quarter: 2015Q2

REPORT INFORMATION
  Report Type: Spontaneous
  Country: US (occurrence: US)
  Receive Date: 20150425
  Receipt Date: 20150524
  Transmission Date: 20150821
  Serious: No
  Sender: FDA-Public Use
  Company Number: US-JNJFOC-20150318525

PATIENT
  Age: 45 Year
  Sex: Female
  Weight: 63.5 kg

DRUGS (11)
  1. FENTANYL TRANSDERMAL SYSTEM [Suspect]
     Active Substance: FENTANYL
     Indication: SURGERY
     Route: 062
     Dates: start: 201403
  2. FENTANYL TRANSDERMAL SYSTEM [Suspect]
     Active Substance: FENTANYL
     Indication: PSORIATIC ARTHROPATHY
     Route: 062
     Dates: start: 201403
  3. SULFASALAZINE. [Concomitant]
     Active Substance: SULFASALAZINE
     Indication: SPINAL OSTEOARTHRITIS
     Route: 048
     Dates: start: 2007
  4. OXYCONTIN [Concomitant]
     Active Substance: OXYCODONE HYDROCHLORIDE
     Indication: SPINAL OSTEOARTHRITIS
     Route: 048
     Dates: start: 2006
  5. OXYCONTIN [Concomitant]
     Active Substance: OXYCODONE HYDROCHLORIDE
     Indication: PSORIATIC ARTHROPATHY
     Route: 048
     Dates: start: 2006
  6. FENTANYL TRANSDERMAL SYSTEM [Suspect]
     Active Substance: FENTANYL
     Indication: TRIGEMINAL NEURALGIA
     Route: 062
     Dates: start: 201403
  7. FENTANYL TRANSDERMAL SYSTEM [Suspect]
     Active Substance: FENTANYL
     Indication: SPINAL OSTEOARTHRITIS
     Route: 062
     Dates: start: 201403
  8. ENBREL [Concomitant]
     Active Substance: ETANERCEPT
     Indication: PSORIATIC ARTHROPATHY
     Route: 065
     Dates: start: 201408
  9. SULFASALAZINE. [Concomitant]
     Active Substance: SULFASALAZINE
     Indication: PSORIATIC ARTHROPATHY
     Route: 048
     Dates: start: 2007
  10. ENBREL [Concomitant]
     Active Substance: ETANERCEPT
     Indication: SPINAL OSTEOARTHRITIS
     Route: 065
     Dates: start: 201408
  11. TIZANIDINE HCL [Concomitant]
     Active Substance: TIZANIDINE HYDROCHLORIDE
     Indication: MUSCLE RELAXANT THERAPY
     Route: 048
     Dates: start: 2007

REACTIONS (1)
  - Drug ineffective [Unknown]

NARRATIVE: CASE EVENT DATE: 201503
